FAERS Safety Report 4536487-3 (Version None)
Quarter: 2004Q4

REPORT INFORMATION
  Report Type: 
  Country: None (occurrence: None)
  Receive Date: 20041223
  Receipt Date: 20041215
  Transmission Date: 20050328
  Serious: Yes (Hospitalization)
  Sender: FDA-Public Use
  Company Number: US-JNJFOC-20041000993

PATIENT
  Sex: Male
  Weight: 99.79 kg

DRUGS (26)
  1. NATRECOR [Suspect]
     Dosage: INFUSION DOSE
     Route: 042
  2. NATRECOR [Suspect]
     Dosage: BOLUS DOSE
     Route: 042
  3. BUMETANIDE [Concomitant]
  4. CLOPIDOGREL BISULFATE [Concomitant]
  5. PANTOPRAZOLE SODIUM [Concomitant]
  6. TERAZOSIN HCL [Concomitant]
  7. SPIRONOLACTONE [Concomitant]
  8. NITROGLYCERIN [Concomitant]
  9. PRAVASTATIN [Concomitant]
  10. MULTI-VITAMIN [Concomitant]
  11. MULTI-VITAMIN [Concomitant]
  12. MULTI-VITAMIN [Concomitant]
  13. MULTI-VITAMIN [Concomitant]
  14. MULTI-VITAMIN [Concomitant]
  15. MULTI-VITAMIN [Concomitant]
  16. MULTI-VITAMIN [Concomitant]
  17. MULTI-VITAMIN [Concomitant]
  18. METOLAZONE [Concomitant]
  19. POTASSIUM CHLORIDE [Concomitant]
  20. CITALOPRAM HYDROBROMIDE [Concomitant]
  21. ALPRAZOLAM [Concomitant]
  22. ISOSORBIDE MONONITRATE [Concomitant]
  23. FOLIC ACID [Concomitant]
  24. ACETYLSALICYLIC ACID [Concomitant]
  25. CARVEDILOL [Concomitant]
  26. AMIODARONE [Concomitant]
     Dates: end: 20041001

REACTIONS (2)
  - CHEST PAIN [None]
  - TREMOR [None]
